FAERS Safety Report 14798756 (Version 1)
Quarter: 2018Q2

REPORT INFORMATION
  Report Type: Spontaneous
  Country: US (occurrence: US)
  Receive Date: 20180416
  Receipt Date: 20180416
  Transmission Date: 20180711
  Serious: No
  Sender: FDA-Public Use
  Company Number: None

PATIENT
  Age: 68 Year
  Sex: Female

DRUGS (8)
  1. WARFARIN [Concomitant]
     Active Substance: WARFARIN
  2. SIMVASTATIN. [Concomitant]
     Active Substance: SIMVASTATIN
  3. FUROSEMIDE. [Concomitant]
     Active Substance: FUROSEMIDE
  4. LETAIRIS [Suspect]
     Active Substance: AMBRISENTAN
     Indication: PULMONARY ARTERIAL HYPERTENSION
     Route: 048
     Dates: start: 200811
  5. OMEPRAZOLE. [Concomitant]
     Active Substance: OMEPRAZOLE
  6. PROCHLORPERAZINE. [Concomitant]
     Active Substance: PROCHLORPERAZINE
  7. TRAMADOL. [Concomitant]
     Active Substance: TRAMADOL
  8. SILDENAFIL. [Concomitant]
     Active Substance: SILDENAFIL

REACTIONS (2)
  - Drug dose omission [None]
  - Inability to afford medication [None]

NARRATIVE: CASE EVENT DATE: 20180414
